FAERS Safety Report 6007575-X (Version None)
Quarter: 2008Q4

REPORT INFORMATION
  Report Type: 
  Country: None (occurrence: None)
  Receive Date: 20081217
  Receipt Date: 20080513
  Transmission Date: 20090506
  Serious: No
  Sender: FDA-Public Use
  Company Number: US-ASTRAZENECA-2008UW09808

PATIENT
  Age: 72 Year
  Sex: Female
  Weight: 75.3 kg

DRUGS (3)
  1. CRESTOR [Suspect]
     Indication: BLOOD CHOLESTEROL INCREASED
     Route: 048
     Dates: start: 20080401
  2. LIBRAX [Concomitant]
  3. ENTOCORT EC [Concomitant]

REACTIONS (2)
  - ABDOMINAL DISCOMFORT [None]
  - BOWEL MOVEMENT IRREGULARITY [None]
